FAERS Safety Report 15559564 (Version 1)
Quarter: 2018Q4

REPORT INFORMATION
  Report Type: Spontaneous
  Country: US (occurrence: US)
  Receive Date: 20181023
  Receipt Date: 20181023
  Transmission Date: 20190205
  Serious: No
  Sender: FDA-Public Use
  Company Number: None

PATIENT
  Age: 57 Year
  Sex: Female
  Weight: 55.79 kg

DRUGS (3)
  1. ALENDRONATE SODIUM 70MG TAB [Suspect]
     Active Substance: ALENDRONATE SODIUM
     Indication: ARTHROPATHY
     Dosage: OTHER STRENGTH:70 MG TAB;QUANTITY:1 PILL;OTHER FREQUENCY:1 WEEKLY MORNING;OTHER ROUTE:MOUTH LOTS OF WATER?
     Route: 048
     Dates: start: 20180508, end: 20180618
  2. LETROZOLE. [Concomitant]
     Active Substance: LETROZOLE
  3. B12 SHOTS [Concomitant]
     Active Substance: CYANOCOBALAMIN

REACTIONS (3)
  - Dysphagia [None]
  - Depression [None]
  - Gait disturbance [None]

NARRATIVE: CASE EVENT DATE: 20180524
